FAERS Safety Report 25807943 (Version 4)
Quarter: 2025Q4

REPORT INFORMATION
  Report Type: Report from Study
  Country: US (occurrence: US)
  Receive Date: 20250916
  Receipt Date: 20251022
  Transmission Date: 20260118
  Serious: Yes (Other)
  Sender: ABBVIE
  Company Number: US-ABBVIE-6447139

PATIENT
  Age: 83 Year
  Sex: Male

DRUGS (2)
  1. VYALEV [Suspect]
     Active Substance: FOSCARBIDOPA\FOSLEVODOPA
     Indication: Parkinson^s disease
     Dosage: DOSE ADJUSTED
     Route: 058
     Dates: start: 2025
  2. VYALEV [Suspect]
     Active Substance: FOSCARBIDOPA\FOSLEVODOPA
     Dosage: LAST ADMIN DATE: 2025
     Route: 058
     Dates: start: 20250903

REACTIONS (15)
  - Back disorder [Unknown]
  - Mood altered [Unknown]
  - Catheter site pain [Unknown]
  - Catheter site mass [Unknown]
  - Blood pressure increased [Recovered/Resolved]
  - Decreased appetite [Recovering/Resolving]
  - Asthenia [Recovering/Resolving]
  - Movement disorder [Not Recovered/Not Resolved]
  - Anxiety [Recovered/Resolved]
  - Limb injury [Unknown]
  - Depression [Unknown]
  - Musculoskeletal disorder [Unknown]
  - Parkinson^s disease [Recovering/Resolving]
  - Weight decreased [Unknown]
  - Infusion site pain [Recovering/Resolving]

NARRATIVE: CASE EVENT DATE: 20250101
